FAERS Safety Report 7415862-3 (Version None)
Quarter: 2011Q2

REPORT INFORMATION
  Report Type: 
  Country: None (occurrence: None)
  Receive Date: 20110414
  Receipt Date: 20110408
  Transmission Date: 20111010
  Serious: Yes (Hospitalization)
  Sender: FDA-Public Use
  Company Number: ES-ABBOTT-11P-144-0715343-00

PATIENT
  Age: 18 Year
  Sex: Female

DRUGS (2)
  1. HUMIRA [Suspect]
     Indication: STEROID THERAPY
     Dosage: LOADING DOSE 160MG
     Route: 058
     Dates: start: 20110301, end: 20110301
  2. HUMIRA [Suspect]
     Indication: CROHN'S DISEASE
     Dosage: LOADING DOSE 80MG
     Route: 058
     Dates: end: 20110301

REACTIONS (1)
  - EPSTEIN-BARR VIRUS INFECTION [None]
